FAERS Safety Report 8119088-X (Version None)
Quarter: 2012Q1

REPORT INFORMATION
  Report Type: 
  Country: None (occurrence: None)
  Receive Date: 20120207
  Receipt Date: 20120131
  Transmission Date: 20120608
  Serious: Yes (Death, Hospitalization)
  Sender: FDA-Public Use
  Company Number: US-ROCHE-1031544

PATIENT
  Sex: Male
  Weight: 64.468 kg

DRUGS (5)
  1. DECADRON [Concomitant]
     Route: 042
  2. ERBITUX [Suspect]
     Indication: LUNG NEOPLASM MALIGNANT
     Route: 042
     Dates: start: 20100421, end: 20100421
  3. ONDANSETRON HCL [Concomitant]
     Route: 042
     Dates: start: 20100421, end: 20100421
  4. BENADRYL [Concomitant]
     Route: 042
     Dates: start: 20100421, end: 20100421
  5. TARCEVA [Suspect]
     Indication: LUNG NEOPLASM MALIGNANT
     Route: 048
     Dates: start: 20100303, end: 20100306

REACTIONS (2)
  - LUNG NEOPLASM MALIGNANT [None]
  - PNEUMONIA [None]
